FAERS Safety Report 4912579-1 (Version None)
Quarter: 2006Q1

REPORT INFORMATION
  Report Type: 
  Country: None (occurrence: None)
  Receive Date: 20060215
  Receipt Date: 20060210
  Transmission Date: 20060701
  Serious: Yes (Hospitalization)
  Sender: FDA-Public Use
  Company Number: US-GLAXOSMITHKLINE-A0593267A

PATIENT
  Age: 70 Year
  Sex: Female

DRUGS (2)
  1. ADVAIR DISKUS 100/50 [Suspect]
     Indication: ASTHMA
     Dosage: 1PUFF TWICE PER DAY
     Route: 055
     Dates: end: 20051214
  2. SYNTHROID [Concomitant]

REACTIONS (4)
  - AORTIC ANEURYSM [None]
  - CARDIAC MURMUR [None]
  - DRUG PRESCRIBING ERROR [None]
  - RESPIRATORY DISORDER [None]
